FAERS Safety Report 6932843-4 (Version None)
Quarter: 2010Q3

REPORT INFORMATION
  Report Type: 
  Country: None (occurrence: None)
  Receive Date: 20100813
  Receipt Date: 20100428
  Transmission Date: 20110219
  Serious: No
  Sender: FDA-Public Use
  Company Number: 1000013287

PATIENT
  Age: 39 Year
  Sex: Female

DRUGS (10)
  1. SAVELLA [Suspect]
     Indication: FIBROMYALGIA
     Dosage: SEE IMAGE, ORAL
     Route: 048
     Dates: start: 20100101, end: 20100101
  2. SAVELLA [Suspect]
     Indication: FIBROMYALGIA
     Dosage: SEE IMAGE, ORAL
     Route: 048
     Dates: start: 20100101, end: 20100101
  3. SAVELLA [Suspect]
     Indication: FIBROMYALGIA
     Dosage: SEE IMAGE, ORAL
     Route: 048
     Dates: start: 20100101, end: 20100419
  4. TORADOL (TABLETS) [Concomitant]
  5. HYDROXYZINE [Concomitant]
  6. NADOLOL [Concomitant]
  7. PREDNISONE [Concomitant]
  8. ARAVA [Concomitant]
  9. VOLTAREN [Concomitant]
  10. FLECTOR [Concomitant]

REACTIONS (1)
  - WEIGHT DECREASED [None]
